FAERS Safety Report 6818966-9 (Version None)
Quarter: 2010Q3

REPORT INFORMATION
  Report Type: 
  Country: None (occurrence: None)
  Receive Date: 20100707
  Receipt Date: 20100303
  Transmission Date: 20110219
  Serious: Yes (Other)
  Sender: FDA-Public Use
  Company Number: US-ASTRAZENECA-2009SE19332

PATIENT
  Age: 19960 Day
  Sex: Female

DRUGS (11)
  1. SEROQUEL [Suspect]
     Dosage: 25 MG, TAKE 2 BY MOUTH AT NIGHT.
     Route: 048
     Dates: start: 20040519
  2. SYNTHROID [Concomitant]
  3. ATIVAN [Concomitant]
  4. ATARAX [Concomitant]
  5. ACTOS [Concomitant]
  6. LASIX [Concomitant]
  7. COLACE [Concomitant]
  8. ZOCOR [Concomitant]
  9. EFFEXOR XR [Concomitant]
     Route: 048
     Dates: start: 20040101
  10. TRAZODONE HYDROCHLORIDE [Concomitant]
     Route: 048
     Dates: start: 20040101
  11. ELAVIL [Concomitant]
     Route: 048
     Dates: start: 20040101

REACTIONS (2)
  - DIABETES MELLITUS [None]
  - NEUROPATHY PERIPHERAL [None]
